FAERS Safety Report 7212804-0 (Version None)
Quarter: 2010Q4

REPORT INFORMATION
  Report Type: 
  Country: None (occurrence: None)
  Receive Date: 20101229
  Receipt Date: 20101203
  Transmission Date: 20110411
  Serious: Yes (Other)
  Sender: FDA-Public Use
  Company Number: JP-1182607

PATIENT
  Age: 71 Year
  Sex: Male

DRUGS (1)
  1. FLUORESCITE [Suspect]
     Indication: ANGIOGRAM RETINA
     Dosage: 5 ML, 500 MG = 5 ML INTRAVENOUS BOLUS
     Route: 040
     Dates: start: 20100625, end: 20100625

REACTIONS (6)
  - ANAPHYLACTOID SHOCK [None]
  - DROOLING [None]
  - EYE ROLLING [None]
  - LOSS OF CONSCIOUSNESS [None]
  - PALPITATIONS [None]
  - YAWNING [None]
